FAERS Safety Report 8033834-5 (Version None)
Quarter: 2012Q1

REPORT INFORMATION
  Report Type: 
  Country: None (occurrence: None)
  Receive Date: 20120110
  Receipt Date: 20120106
  Transmission Date: 20120608
  Serious: No
  Sender: FDA-Public Use
  Company Number: US-B.I. PHARMACEUTICALS,INC./RIDGEFIELD-2012-BP-00328BP

PATIENT
  Sex: Female

DRUGS (8)
  1. ZANTAC [Concomitant]
     Indication: GASTROOESOPHAGEAL REFLUX DISEASE
     Dosage: 150 MG
     Route: 048
  2. MOBIC [Concomitant]
     Indication: CHONDRITIS
     Dosage: 7.5 MG
     Route: 048
     Dates: start: 20070101
  3. VITAMIN B-12 [Concomitant]
     Indication: PROPHYLAXIS
     Route: 030
  4. PRADAXA [Suspect]
     Indication: ATRIAL FIBRILLATION
     Dosage: 300 MG
     Route: 048
     Dates: start: 20110601, end: 20110601
  5. VITAMIN AND MINERAL PRENATAL SUPPLEMENT W/ FOLIC ACID CAP [Concomitant]
     Indication: PROPHYLAXIS
     Route: 048
  6. PRADAXA [Suspect]
     Dosage: 150 MG
     Route: 048
     Dates: start: 20110601
  7. VITAMIN B-12 [Concomitant]
     Dosage: 500 MG
     Route: 060
  8. XANAX [Concomitant]
     Indication: ANXIETY
     Dosage: 0.05 MG
     Route: 048

REACTIONS (1)
  - MUSCLE SPASMS [None]
